FAERS Safety Report 9026883 (Version 1)
Quarter: 2013Q1

REPORT INFORMATION
  Report Type: Spontaneous
  Country: US (occurrence: US)
  Receive Date: 20130123
  Receipt Date: 20130123
  Transmission Date: 20140127
  Serious: No
  Sender: FDA-Public Use
  Company Number: US-PFIZER INC-2013024266

PATIENT
  Age: 76 Year
  Sex: Female
  Weight: 77.1 kg

DRUGS (3)
  1. CELEBREX [Suspect]
     Indication: OSTEOARTHRITIS
     Dosage: UNK
     Dates: start: 2012
  2. FLECTOR [Suspect]
     Indication: OSTEOARTHRITIS
     Dosage: UNK
     Route: 062
     Dates: start: 201301
  3. NAPROSYN [Suspect]
     Indication: OSTEOARTHRITIS
     Dosage: UNK

REACTIONS (3)
  - Drug ineffective [Unknown]
  - Gastric disorder [Unknown]
  - Medication error [Unknown]
